FAERS Safety Report 20956857 (Version 1)
Quarter: 2022Q2

REPORT INFORMATION
  Report Type: Spontaneous
  Country: US (occurrence: US)
  Receive Date: 20220614
  Receipt Date: 20220614
  Transmission Date: 20220721
  Serious: No
  Sender: FDA-Public Use
  Company Number: US-BRISTOL-MYERS SQUIBB COMPANY-2022-049382

PATIENT
  Age: 48 Year
  Sex: Male

DRUGS (3)
  1. REVLIMID [Suspect]
     Active Substance: LENALIDOMIDE
     Indication: Plasma cell myeloma
     Dosage: FREQ- TAKE 1 CAPSULE BY MOUTH DAILY FOR 28 DAYS
     Route: 048
     Dates: start: 20191219
  2. COLESTIPOL [Concomitant]
     Active Substance: COLESTIPOL
     Indication: Plasma cell myeloma
  3. METAXALONE [Concomitant]
     Active Substance: METAXALONE
     Indication: Plasma cell myeloma

REACTIONS (2)
  - Illness [Unknown]
  - Product dose omission issue [Unknown]
